FAERS Safety Report 10770985 (Version 1)
Quarter: 2015Q1

REPORT INFORMATION
  Report Type: Spontaneous
  Country: US (occurrence: US)
  Receive Date: 20150206
  Receipt Date: 20150206
  Transmission Date: 20150721
  Serious: No
  Sender: FDA-Public Use
  Company Number: US-GLAXOSMITHKLINE-US2014GSK049318

PATIENT
  Sex: Female
  Weight: 80.73 kg

DRUGS (13)
  1. ATENOLOL TABLET [Concomitant]
     Dosage: 25 MG, U
  2. VITAMIN C CAPSULE [Concomitant]
     Dosage: 500 MG, U
  3. AMBIEN TABLET [Concomitant]
     Dosage: 10 MG, U
  4. GABAPENTIN CAPSULE [Concomitant]
     Active Substance: GABAPENTIN
     Dosage: 300 MG, UNK
  5. LEXAPRO TABLET [Concomitant]
     Dosage: 10 MG, U
  6. VOTRIENT [Suspect]
     Active Substance: PAZOPANIB HYDROCHLORIDE
     Indication: HEAD AND NECK CANCER
  7. VOTRIENT [Suspect]
     Active Substance: PAZOPANIB HYDROCHLORIDE
     Indication: MALIGNANT CONNECTIVE TISSUE NEOPLASM
     Dosage: 800 MG, QD
     Route: 048
     Dates: start: 201407
  8. VITAMIN E CAPSULE [Concomitant]
     Dosage: 1000 UNK, UNK
  9. VITAMIN D3 [Concomitant]
     Active Substance: CHOLECALCIFEROL
  10. GREEN TEA CAPSULE [Concomitant]
     Dosage: UNK
  11. LORAZEPAM TABLET [Concomitant]
     Dosage: 1 MG, U
  12. TYLENOL EXTRA STRENGTH TABLET [Concomitant]
     Dosage: 500 MG, U
  13. L PROLINE [Concomitant]

REACTIONS (2)
  - Diarrhoea [Unknown]
  - Sinusitis [Unknown]
